FAERS Safety Report 12263604 (Version 1)
Quarter: 2016Q2

REPORT INFORMATION
  Report Type: Spontaneous
  Country: CN (occurrence: CN)
  Receive Date: 20160413
  Receipt Date: 20160413
  Transmission Date: 20160815
  Serious: Yes (Death, Other)
  Sender: FDA-Public Use
  Company Number: CN-PFIZER INC-2016204285

PATIENT
  Age: 82 Year
  Sex: Female
  Weight: 66.5 kg

DRUGS (1)
  1. ZYVOX [Suspect]
     Active Substance: LINEZOLID
     Indication: TREATMENT NONCOMPLIANCE
     Dosage: 0.6 G, 1X/DAY
     Route: 041
     Dates: start: 20150903, end: 20150916

REACTIONS (1)
  - Bone marrow failure [Fatal]

NARRATIVE: CASE EVENT DATE: 20150916
